FAERS Safety Report 9184389 (Version 2)
Quarter: 2013Q2

REPORT INFORMATION
  Report Type: Spontaneous
  Country: US (occurrence: US)
  Receive Date: 20130322
  Receipt Date: 20130523
  Transmission Date: 20140414
  Serious: Yes (Other)
  Sender: FDA-Public Use
  Company Number: US-JNJFOC-20130313795

PATIENT
  Sex: 0

DRUGS (5)
  1. DOXORUBICIN [Suspect]
     Indication: HODGKIN^S DISEASE
     Dosage: ON DAYS 1 AND 15 OF A 28-DAY CYCLE FOR A TOTAL OF 6 CYCLES
     Route: 042
  2. DOXORUBICIN [Suspect]
     Indication: HODGKIN^S DISEASE
     Dosage: ON DAYS 1 AND 15 OF A 28-DAY CYCLE FOR A TOTAL OF 6 CYCLES
     Route: 042
  3. BLEOMYCIN [Suspect]
     Indication: HODGKIN^S DISEASE
     Dosage: 10.0 UNITS/M2; ON DAYS 1 AND 15 OF A 28-DAY CYCLE FOR A TOTAL OF 6 CYCLES
     Route: 042
  4. VINBLASTINE [Suspect]
     Indication: HODGKIN^S DISEASE
     Dosage: ON DAYS 1 AND 15 OF A 28-DAY CYCLE FOR A TOTAL OF 6 CYCLES
     Route: 042
  5. DACARBAZINE [Suspect]
     Indication: HODGKIN^S DISEASE
     Dosage: ON DAYS 1 AND 15 OF A 28-DAY CYCLE FOR A TOTAL OF 6 CYCLES
     Route: 042

REACTIONS (2)
  - Thymus disorder [Recovered/Resolved]
  - Sarcoidosis [Unknown]
